FAERS Safety Report 9404741 (Version 1)
Quarter: 2013Q3

REPORT INFORMATION
  Report Type: Report from Study
  Country: IN (occurrence: IN)
  Receive Date: 20130717
  Receipt Date: 20130717
  Transmission Date: 20140515
  Serious: Yes (Death, Hospitalization)
  Sender: FDA-Public Use
  Company Number: PHHY2013IN074990

PATIENT
  Age: 62 Year
  Sex: Male
  Weight: 85 kg

DRUGS (7)
  1. EXELON PATCH [Suspect]
     Indication: DEMENTIA ALZHEIMER^S TYPE
     Dosage: 4.6 MG DAILY
     Route: 062
     Dates: start: 20130403, end: 20130607
  2. EXELON PATCH [Suspect]
     Dosage: 4.6 MG DAILY
     Route: 062
  3. HEPTRAL//ADEMETIONINE [Concomitant]
     Indication: TUBERCULOSIS
     Dosage: UNK UKN, UNK
     Route: 048
  4. RENERV [Concomitant]
     Indication: NEUROPATHY PERIPHERAL
     Dosage: UNK UKN, UNK
     Route: 048
  5. STREPTOMYCIN [Concomitant]
     Indication: ANTIBIOTIC THERAPY
     Dosage: UNK UKN, UNK
  6. INSULIN [Concomitant]
     Indication: DIABETES MELLITUS
     Dosage: UNK UKN, UNK
  7. HEPAMARIN [Concomitant]
     Dosage: UNK UKN, UNK

REACTIONS (5)
  - Hallucination [Fatal]
  - Logorrhoea [Unknown]
  - Sleep disorder [Unknown]
  - Decreased appetite [Unknown]
  - Memory impairment [Unknown]
